FAERS Safety Report 5376994-7 (Version None)
Quarter: 2007Q2

REPORT INFORMATION
  Report Type: 
  Country: None (occurrence: None)
  Receive Date: 20070628
  Receipt Date: 20070628
  Transmission Date: 20071010
  Serious: Yes (Hospitalization)
  Sender: FDA-Public Use
  Company Number: None

PATIENT
  Age: 53 Year
  Sex: Female
  Weight: 57 kg

DRUGS (13)
  1. AVELOX [Suspect]
     Indication: PNEUMONIA
     Dosage: 400MG 1 DOSE IV
     Route: 042
  2. ACETAMINOPHEN [Concomitant]
  3. ALBUTEROL [Concomitant]
  4. DIGOXIN [Concomitant]
  5. LASIX(R) [Concomitant]
  6. HEPARIN [Concomitant]
  7. HYDRLAZINE [Concomitant]
  8. LANTUS(R) [Concomitant]
  9. REGULAR INSULIN [Concomitant]
  10. SOLU-MEDROL [Concomitant]
  11. TOPROL(R) XL [Concomitant]
  12. PROTONIX(R) [Concomitant]
  13. POTASSIUM CHLORIDE [Concomitant]

REACTIONS (4)
  - DYSPNOEA [None]
  - EYE IRRITATION [None]
  - PRURITUS GENERALISED [None]
  - SKIN BURNING SENSATION [None]
